FAERS Safety Report 5512743-7 (Version None)
Quarter: 2007Q4

REPORT INFORMATION
  Report Type: 
  Country: None (occurrence: None)
  Receive Date: 20071112
  Receipt Date: 20071101
  Transmission Date: 20080405
  Serious: Yes (Death)
  Sender: FDA-Public Use
  Company Number: JP-ROCHE-524351

PATIENT
  Age: 83 Year
  Sex: Female
  Weight: 43 kg

DRUGS (11)
  1. ROCEPHIN [Suspect]
     Indication: IMPLANT SITE INFECTION
     Route: 042
     Dates: start: 20070912, end: 20070912
  2. FAMOTIDINE [Concomitant]
     Route: 048
     Dates: end: 20070912
  3. ALFACALCIDOL [Concomitant]
     Dosage: DRUG NAME: ALFASULY
     Route: 048
     Dates: end: 20070912
  4. NORVASC [Concomitant]
     Route: 048
     Dates: end: 20070912
  5. SOLDEM [Concomitant]
     Dosage: DRUG NAME: SOLDEM 3A (MAINTENANCE MEDIUM)
     Route: 041
     Dates: start: 20070907, end: 20070908
  6. SOLDEM [Concomitant]
     Route: 041
     Dates: start: 20070909, end: 20070909
  7. SOLDEM [Concomitant]
     Route: 041
     Dates: start: 20070910, end: 20070910
  8. NOVO-HEPARIN [Concomitant]
     Route: 042
     Dates: start: 20070907, end: 20070907
  9. CEFZON [Concomitant]
     Route: 048
     Dates: start: 20070907, end: 20070910
  10. GLYSENNID [Concomitant]
     Route: 048
     Dates: start: 20070908, end: 20070908
  11. PULMICORT RESPULES [Concomitant]
     Route: 055

REACTIONS (4)
  - ANAPHYLACTIC SHOCK [None]
  - DISSEMINATED INTRAVASCULAR COAGULATION [None]
  - MULTI-ORGAN FAILURE [None]
  - SHOCK [None]
